FAERS Safety Report 6674827-X (Version None)
Quarter: 2010Q1

REPORT INFORMATION
  Report Type: 
  Country: None (occurrence: None)
  Receive Date: 20100331
  Receipt Date: 20091214
  Transmission Date: 20100710
  Serious: Yes (Other)
  Sender: FDA-Public Use
  Company Number: 2009310713

PATIENT
  Age: 44 Year
  Sex: Male
  Weight: 126.1 kg

DRUGS (2)
  1. SUTENT [Suspect]
     Indication: RENAL CANCER
     Dosage: 50 MG, 1X/DAY, ORAL
     Route: 048
     Dates: start: 20091023
  2. COUMADIN [Concomitant]

REACTIONS (2)
  - BLOOD PRESSURE INCREASED [None]
  - NAIL DISCOLOURATION [None]
